FAERS Safety Report 16604387 (Version 1)
Quarter: 2019Q3

REPORT INFORMATION
  Report Type: Spontaneous
  Country: US (occurrence: US)
  Receive Date: 20190721
  Receipt Date: 20190721
  Transmission Date: 20191004
  Serious: No
  Sender: FDA-Public Use
  Company Number: US-GALDERMA-US18052541

PATIENT
  Age: 54 Year
  Sex: Female

DRUGS (3)
  1. UNSPECIFIED MAKE UP [Concomitant]
     Active Substance: COSMETICS
  2. DIFFERIN GEL [Suspect]
     Active Substance: ADAPALENE
     Indication: ACNE
     Dosage: 0.1%
     Route: 061
     Dates: start: 201809, end: 20181201
  3. DRUNK ELEPHANT MOITURIZER [Concomitant]

REACTIONS (2)
  - Rash papular [Recovered/Resolved]
  - Drug ineffective [Recovered/Resolved]

NARRATIVE: CASE EVENT DATE: 201809
